FAERS Safety Report 8280723-7 (Version None)
Quarter: 2012Q2

REPORT INFORMATION
  Report Type: 
  Country: None (occurrence: None)
  Receive Date: 20120412
  Receipt Date: 20120201
  Transmission Date: 20120825
  Serious: No
  Sender: FDA-Public Use
  Company Number: US-ASTRAZENECA-2012SE07167

PATIENT

DRUGS (3)
  1. SINGULAIR [Concomitant]
  2. NEXIUM [Suspect]
     Route: 048
  3. BYTORIN [Concomitant]

REACTIONS (1)
  - COELIAC DISEASE [None]
